FAERS Safety Report 4498605-5 (Version None)
Quarter: 2004Q4

REPORT INFORMATION
  Report Type: 
  Country: None (occurrence: None)
  Receive Date: 20041111
  Receipt Date: 20041102
  Transmission Date: 20050328
  Serious: Yes (Death, Life-Threatening, Disabling, Other)
  Sender: FDA-Public Use
  Company Number: 200413277EU

PATIENT
  Age: 78 Year
  Sex: Male
  Weight: 65 kg

DRUGS (7)
  1. DOCETAXEL [Suspect]
     Indication: PROSTATE CANCER
     Route: 042
     Dates: start: 20040728, end: 20040928
  2. PREDNISONE [Suspect]
     Indication: PROSTATE CANCER
     Route: 048
     Dates: start: 20040728, end: 20040928
  3. MEPAMIDE [Concomitant]
     Indication: GASTRIC ULCER
     Route: 048
  4. TENORMIN [Concomitant]
     Indication: HYPERTENSION
     Route: 048
  5. GLYBURIDE [Concomitant]
     Indication: DIABETES MELLITUS
     Route: 048
  6. LACTULOSE [Concomitant]
     Indication: CONSTIPATION
     Route: 048
  7. CONTRAMAL [Concomitant]
     Indication: PAIN
     Route: 048

REACTIONS (9)
  - COMA [None]
  - CONFUSIONAL STATE [None]
  - DISEASE PROGRESSION [None]
  - DYSPHAGIA [None]
  - FUNGAL OESOPHAGITIS [None]
  - HEPATOTOXICITY [None]
  - OEDEMA PERIPHERAL [None]
  - PROSTRATION [None]
  - THROMBOPHLEBITIS [None]
